FAERS Safety Report 5297830-3 (Version None)
Quarter: 2007Q2

REPORT INFORMATION
  Report Type: 
  Country: None (occurrence: None)
  Receive Date: 20070416
  Receipt Date: 20070410
  Transmission Date: 20071010
  Serious: Yes (Hospitalization)
  Sender: FDA-Public Use
  Company Number: US-GENENTECH-235918

PATIENT
  Sex: Male
  Weight: 65.759 kg

DRUGS (22)
  1. BEVACIZUMAB [Suspect]
     Indication: NON-SMALL CELL LUNG CANCER
     Dosage: 1016 UNK, Q3W
     Route: 042
     Dates: start: 20060615, end: 20070118
  2. ERLOTINIB [Suspect]
     Indication: NON-SMALL CELL LUNG CANCER
     Dosage: 150 UNK, QD
     Route: 048
     Dates: start: 20060615, end: 20070131
  3. NEXIUM [Concomitant]
     Indication: GASTROOESOPHAGEAL REFLUX DISEASE
     Dates: start: 20060201, end: 20070131
  4. PLAVIX [Concomitant]
     Indication: PROPHYLAXIS
     Dates: start: 20000101, end: 20070205
  5. LORAZEPAM [Concomitant]
     Indication: ANXIETY
     Dates: start: 20060321, end: 20060914
  6. CARAFATE [Concomitant]
     Indication: DYSPHAGIA
     Dates: start: 20060307, end: 20060817
  7. LABETALOL HCL [Concomitant]
     Indication: HYPERTENSION
     Dates: start: 20000101, end: 20070216
  8. LEVAQUIN [Concomitant]
     Indication: UPPER RESPIRATORY TRACT INFECTION
     Dates: start: 20060816, end: 20060828
  9. ADVAIR DISKUS 100/50 [Concomitant]
     Indication: UPPER RESPIRATORY TRACT INFECTION
     Dates: start: 20060821, end: 20060914
  10. ROBITUSSIN AC (UNITED STATES) [Concomitant]
     Indication: UPPER RESPIRATORY TRACT INFECTION
     Dates: start: 20060821, end: 20060927
  11. CAPITAL W/CODEINE [Concomitant]
     Indication: UPPER RESPIRATORY TRACT INFECTION
     Dates: start: 20060929, end: 20070131
  12. MEDROL [Concomitant]
     Indication: UPPER RESPIRATORY TRACT INFECTION
     Dates: start: 20061127, end: 20061204
  13. CLARITIN [Concomitant]
     Indication: UPPER RESPIRATORY TRACT INFECTION
     Dates: start: 20061228, end: 20070131
  14. PANTOPRAZOLE [Concomitant]
     Indication: OESOPHAGITIS
     Dates: start: 20070205, end: 20070216
  15. HYDROMORPHONE HCL [Concomitant]
     Indication: OESOPHAGITIS
     Dates: start: 20070131, end: 20070205
  16. CHLORHEXIDINE [Concomitant]
     Indication: OESOPHAGITIS
     Dates: start: 20070201, end: 20070216
  17. DIGOXIN [Concomitant]
     Indication: ATRIAL FIBRILLATION
     Dates: start: 20070207, end: 20070207
  18. ACYCLOVIR [Concomitant]
     Indication: OESOPHAGITIS
     Dates: start: 20070131, end: 20070216
  19. METOCLOPRAMIDE [Concomitant]
     Indication: GASTROOESOPHAGEAL REFLUX DISEASE
     Dates: start: 20070204, end: 20070204
  20. ENALAPRILAT [Concomitant]
     Indication: HYPERTENSION
     Dates: start: 20070208, end: 20070216
  21. HYDRALAZINE HCL [Concomitant]
     Indication: HYPERTENSION
     Dates: start: 20070211, end: 20070214
  22. AUGMENTIN '125' [Concomitant]
     Indication: TRACHEITIS
     Dates: start: 20070110, end: 20070117

REACTIONS (1)
  - TRACHEITIS [None]
